FAERS Safety Report 4275507-0 (Version None)
Quarter: 2004Q1

REPORT INFORMATION
  Report Type: 
  Country: None (occurrence: None)
  Receive Date: 20040121
  Receipt Date: 20031216
  Transmission Date: 20041129
  Serious: Yes (Hospitalization, Congenital Anomaly)
  Sender: FDA-Public Use
  Company Number: US-GLAXOSMITHKLINE-A0443394A

PATIENT
  Sex: Male

DRUGS (1)
  1. SUMATRIPTAN SUCCINATE [Suspect]
     Dosage: 200MG CUMULATIVE DOSE

REACTIONS (17)
  - ASPIRATION [None]
  - CAESAREAN SECTION [None]
  - CLEFT PALATE [None]
  - CONGENITAL ATRIAL SEPTAL DEFECT [None]
  - CONGENITAL CENTRAL NERVOUS SYSTEM ANOMALY [None]
  - CONGENITAL OPTIC NERVE ANOMALY [None]
  - CONGENITAL VENTRICULAR SEPTAL DEFECT [None]
  - CONVULSION [None]
  - CRYPTORCHISM [None]
  - DEVELOPMENTAL DELAY [None]
  - DRUG EXPOSURE DURING PREGNANCY [None]
  - GASTROOESOPHAGEAL REFLUX DISEASE [None]
  - NEONATAL DISORDER [None]
  - PATENT DUCTUS ARTERIOSUS [None]
  - PYREXIA [None]
  - RENAL DISORDER [None]
  - SMALL FOR DATES BABY [None]
